FAERS Safety Report 9318003 (Version 2)
Quarter: 2013Q2

REPORT INFORMATION
  Report Type: Spontaneous
  Country: IT (occurrence: IT)
  Receive Date: 20130530
  Receipt Date: 20130605
  Transmission Date: 20140414
  Serious: Yes (Hospitalization)
  Sender: FDA-Public Use
  Company Number: IT-BRISTOL-MYERS SQUIBB COMPANY-18957563

PATIENT
  Age: 75 Year
  Sex: Female

DRUGS (3)
  1. COUMADIN TABS 5 MG [Suspect]
     Dates: start: 20050101, end: 20130502
  2. TAVOR [Concomitant]
     Dosage: TABS
  3. ISOPTIN [Concomitant]
     Dosage: TABS

REACTIONS (2)
  - Haematemesis [Recovering/Resolving]
  - Dyspepsia [Recovering/Resolving]
